FAERS Safety Report 21717784 (Version 1)
Quarter: 2022Q4

REPORT INFORMATION
  Report Type: Spontaneous
  Country: HR (occurrence: HR)
  Receive Date: 20221212
  Receipt Date: 20221212
  Transmission Date: 20230113
  Serious: Yes (Other)
  Sender: FDA-Public Use
  Company Number: HR-BoehringerIngelheim-2022-BI-207469

PATIENT
  Sex: Male

DRUGS (3)
  1. NINTEDANIB [Suspect]
     Active Substance: NINTEDANIB
     Indication: Lung adenocarcinoma
  2. NINTEDANIB [Suspect]
     Active Substance: NINTEDANIB
  3. DOCETAXEL [Concomitant]
     Active Substance: DOCETAXEL
     Indication: Product used for unknown indication

REACTIONS (2)
  - Renal impairment [Recovered/Resolved]
  - Renal impairment [Recovered/Resolved]
